FAERS Safety Report 8386594-2 (Version None)
Quarter: 2012Q2

REPORT INFORMATION
  Report Type: 
  Country: None (occurrence: None)
  Receive Date: 20120525
  Receipt Date: 20111220
  Transmission Date: 20120825
  Serious: No
  Sender: FDA-Public Use
  Company Number: US-GLAXOSMITHKLINE-A0958812A

PATIENT
  Age: 71 Year
  Sex: Female

DRUGS (4)
  1. REMERON [Concomitant]
  2. LEVOXYL [Concomitant]
  3. VERAMYST [Suspect]
     Indication: RHINITIS ALLERGIC
     Dosage: 1SPR PER DAY
     Route: 045
     Dates: start: 20111219, end: 20111219
  4. CLONAZEPAM [Concomitant]

REACTIONS (2)
  - NASAL DISCOMFORT [None]
  - ANXIETY [None]
